FAERS Safety Report 15146430 (Version 4)
Quarter: 2021Q4

REPORT INFORMATION
  Report Type: Spontaneous
  Country: DE (occurrence: DE)
  Receive Date: 20180715
  Receipt Date: 20211218
  Transmission Date: 20220303
  Serious: Yes (Other)
  Sender: FDA-Public Use
  Company Number: PHHY2017DE202511

PATIENT
  Age: 76 Year
  Sex: Male
  Weight: 71 kg

DRUGS (123)
  1. DEXAMETHASONE [Suspect]
     Active Substance: DEXAMETHASONE
     Indication: Plasma cell myeloma
     Dosage: 40 MG, QD
     Route: 065
     Dates: start: 20170508, end: 20170508
  2. DEXAMETHASONE [Suspect]
     Active Substance: DEXAMETHASONE
     Dosage: 40 MG
     Route: 065
     Dates: start: 20170515, end: 20170515
  3. DEXAMETHASONE [Suspect]
     Active Substance: DEXAMETHASONE
     Dosage: 40 MG
     Route: 065
     Dates: start: 20170522, end: 20170522
  4. DEXAMETHASONE [Suspect]
     Active Substance: DEXAMETHASONE
     Dosage: 40 MG
     Route: 065
     Dates: start: 20170529, end: 20170529
  5. DEXAMETHASONE [Suspect]
     Active Substance: DEXAMETHASONE
     Dosage: 40 MG
     Route: 065
     Dates: start: 20170529, end: 20170529
  6. DEXAMETHASONE [Suspect]
     Active Substance: DEXAMETHASONE
     Dosage: 40 MG
     Route: 065
     Dates: start: 20170606, end: 20170606
  7. DEXAMETHASONE [Suspect]
     Active Substance: DEXAMETHASONE
     Dosage: 40 MG
     Route: 065
     Dates: start: 20170613, end: 20170613
  8. DEXAMETHASONE [Suspect]
     Active Substance: DEXAMETHASONE
     Dosage: 40 MG
     Route: 065
     Dates: start: 20170620, end: 20170620
  9. DEXAMETHASONE [Suspect]
     Active Substance: DEXAMETHASONE
     Dosage: 40 MG
     Route: 065
     Dates: start: 20170703, end: 20170703
  10. DEXAMETHASONE [Suspect]
     Active Substance: DEXAMETHASONE
     Dosage: 40 MG
     Route: 065
     Dates: start: 20170801, end: 20170801
  11. DEXAMETHASONE [Suspect]
     Active Substance: DEXAMETHASONE
     Dosage: 40 MG
     Route: 065
     Dates: start: 20170807, end: 20170807
  12. DEXAMETHASONE [Suspect]
     Active Substance: DEXAMETHASONE
     Dosage: 40 MG
     Route: 065
     Dates: start: 20170814, end: 20170814
  13. DEXAMETHASONE [Suspect]
     Active Substance: DEXAMETHASONE
     Dosage: 40 MG
     Route: 065
     Dates: start: 20170821, end: 20170821
  14. DEXAMETHASONE [Suspect]
     Active Substance: DEXAMETHASONE
     Dosage: 40 MG
     Route: 065
     Dates: start: 20170828, end: 20170828
  15. DEXAMETHASONE [Suspect]
     Active Substance: DEXAMETHASONE
     Dosage: 40 MG
     Route: 065
     Dates: start: 20170904, end: 20170904
  16. DEXAMETHASONE [Suspect]
     Active Substance: DEXAMETHASONE
     Dosage: 40 MG
     Route: 065
     Dates: start: 20170911, end: 20170911
  17. DEXAMETHASONE [Suspect]
     Active Substance: DEXAMETHASONE
     Dosage: 40 MG
     Route: 065
     Dates: start: 20170918, end: 20170918
  18. DEXAMETHASONE [Suspect]
     Active Substance: DEXAMETHASONE
     Dosage: 40 MG
     Route: 065
     Dates: start: 20170925, end: 20170925
  19. DEXAMETHASONE [Suspect]
     Active Substance: DEXAMETHASONE
     Dosage: 40 MG, QD
     Route: 065
     Dates: start: 20171009, end: 20171009
  20. DEXAMETHASONE [Suspect]
     Active Substance: DEXAMETHASONE
     Dosage: 40 MG
     Route: 065
     Dates: start: 20171023, end: 20171023
  21. DEXAMETHASONE [Suspect]
     Active Substance: DEXAMETHASONE
     Dosage: 40 MG, QD
     Route: 065
     Dates: start: 20171107, end: 20171107
  22. DEXAMETHASONE [Suspect]
     Active Substance: DEXAMETHASONE
     Dosage: 20 MG
     Route: 065
     Dates: start: 20171120, end: 20171121
  23. DEXAMETHASONE [Suspect]
     Active Substance: DEXAMETHASONE
     Dosage: 20 MG
     Route: 065
     Dates: start: 20171127, end: 20171128
  24. DEXAMETHASONE [Suspect]
     Active Substance: DEXAMETHASONE
     Dosage: 20 MG
     Route: 065
     Dates: start: 20171204, end: 20171205
  25. DEXAMETHASONE [Suspect]
     Active Substance: DEXAMETHASONE
     Dosage: 20 MG
     Route: 065
     Dates: start: 20171220, end: 20171221
  26. DEXAMETHASONE [Suspect]
     Active Substance: DEXAMETHASONE
     Dosage: 20 MG
     Route: 065
     Dates: start: 20171227, end: 20171228
  27. DEXAMETHASONE [Suspect]
     Active Substance: DEXAMETHASONE
     Dosage: 20 MG
     Route: 065
     Dates: start: 20180103, end: 20180104
  28. DEXAMETHASONE [Suspect]
     Active Substance: DEXAMETHASONE
     Dosage: 20 MG
     Route: 065
     Dates: start: 20180110, end: 20180111
  29. DEXAMETHASONE [Suspect]
     Active Substance: DEXAMETHASONE
     Dosage: 20 MG
     Route: 065
     Dates: start: 20180115, end: 20180116
  30. DEXAMETHASONE [Suspect]
     Active Substance: DEXAMETHASONE
     Dosage: 20 MG
     Route: 065
     Dates: start: 20180122, end: 20180123
  31. DEXAMETHASONE [Suspect]
     Active Substance: DEXAMETHASONE
     Dosage: 20 MG
     Route: 065
     Dates: start: 20180129, end: 20180130
  32. DEXAMETHASONE [Suspect]
     Active Substance: DEXAMETHASONE
     Dosage: 20 MG
     Route: 065
     Dates: start: 20180205, end: 20180206
  33. DEXAMETHASONE [Suspect]
     Active Substance: DEXAMETHASONE
     Dosage: 20 MG
     Route: 065
     Dates: start: 20180212, end: 20180213
  34. DEXAMETHASONE [Suspect]
     Active Substance: DEXAMETHASONE
     Dosage: 20 MG
     Route: 065
     Dates: start: 20180219, end: 20180220
  35. DEXAMETHASONE [Suspect]
     Active Substance: DEXAMETHASONE
     Dosage: 20 MG
     Route: 065
     Dates: start: 20180305, end: 20180306
  36. DEXAMETHASONE [Suspect]
     Active Substance: DEXAMETHASONE
     Dosage: 20 MG
     Route: 065
     Dates: start: 20180226, end: 20180227
  37. LENALIDOMIDE [Suspect]
     Active Substance: LENALIDOMIDE
     Indication: Plasma cell myeloma
     Dosage: 25 MG
     Route: 065
     Dates: start: 20170508, end: 20170528
  38. LENALIDOMIDE [Suspect]
     Active Substance: LENALIDOMIDE
     Dosage: 25 MG
     Route: 065
     Dates: start: 20170607, end: 20170627
  39. LENALIDOMIDE [Suspect]
     Active Substance: LENALIDOMIDE
     Dosage: 25 MG, QD
     Route: 065
     Dates: start: 20170703, end: 20170703
  40. LENALIDOMIDE [Suspect]
     Active Substance: LENALIDOMIDE
     Dosage: 25 MG
     Route: 065
     Dates: start: 20170801, end: 20170822
  41. LENALIDOMIDE [Suspect]
     Active Substance: LENALIDOMIDE
     Dosage: 25 MG
     Route: 065
     Dates: start: 20170828, end: 20170917
  42. LENALIDOMIDE [Suspect]
     Active Substance: LENALIDOMIDE
     Dosage: 25 MG
     Route: 065
     Dates: start: 20170925, end: 20171015
  43. LENALIDOMIDE [Suspect]
     Active Substance: LENALIDOMIDE
     Dosage: 25 MG
     Route: 065
     Dates: start: 20171023, end: 20171112
  44. CARFILZOMIB [Suspect]
     Active Substance: CARFILZOMIB
     Indication: Plasma cell myeloma
     Dosage: 20 MG/M2
     Route: 042
     Dates: start: 20170508, end: 20170508
  45. CARFILZOMIB [Suspect]
     Active Substance: CARFILZOMIB
     Dosage: 20 MG/M2
     Route: 042
     Dates: start: 20170509, end: 20170509
  46. CARFILZOMIB [Suspect]
     Active Substance: CARFILZOMIB
     Dosage: 20 MG/M2
     Route: 042
     Dates: start: 20170515, end: 20170515
  47. CARFILZOMIB [Suspect]
     Active Substance: CARFILZOMIB
     Dosage: 20 MG/M2
     Route: 042
     Dates: start: 20170516, end: 20170516
  48. CARFILZOMIB [Suspect]
     Active Substance: CARFILZOMIB
     Dosage: 27 MG/M2
     Route: 042
     Dates: start: 20170522, end: 20170522
  49. CARFILZOMIB [Suspect]
     Active Substance: CARFILZOMIB
     Dosage: 27 MG/M2
     Route: 042
     Dates: start: 20170523, end: 20170523
  50. CARFILZOMIB [Suspect]
     Active Substance: CARFILZOMIB
     Dosage: 27 MG/M2
     Route: 042
     Dates: start: 20170606, end: 20170606
  51. CARFILZOMIB [Suspect]
     Active Substance: CARFILZOMIB
     Dosage: 27 MG/M2
     Route: 042
     Dates: start: 20170607, end: 20170607
  52. CARFILZOMIB [Suspect]
     Active Substance: CARFILZOMIB
     Dosage: 27 MG/M2
     Route: 042
     Dates: start: 20170613, end: 20170613
  53. CARFILZOMIB [Suspect]
     Active Substance: CARFILZOMIB
     Dosage: 27 MG/M2
     Route: 042
     Dates: start: 20170621, end: 20170621
  54. CARFILZOMIB [Suspect]
     Active Substance: CARFILZOMIB
     Dosage: 27 MG/M2
     Route: 042
     Dates: start: 20170703, end: 20170703
  55. CARFILZOMIB [Suspect]
     Active Substance: CARFILZOMIB
     Dosage: 27 MG/M2
     Route: 042
     Dates: start: 20170801, end: 20170801
  56. CARFILZOMIB [Suspect]
     Active Substance: CARFILZOMIB
     Dosage: 27 MG/M2
     Route: 042
     Dates: start: 20170807, end: 20170808
  57. CARFILZOMIB [Suspect]
     Active Substance: CARFILZOMIB
     Dosage: 27 MG/M2
     Route: 042
     Dates: start: 20170814, end: 20170815
  58. CARFILZOMIB [Suspect]
     Active Substance: CARFILZOMIB
     Dosage: 27 MG/M2
     Route: 042
     Dates: start: 20170828, end: 20170829
  59. CARFILZOMIB [Suspect]
     Active Substance: CARFILZOMIB
     Dosage: 27 MG/M2
     Route: 042
     Dates: start: 20170904, end: 20170905
  60. CARFILZOMIB [Suspect]
     Active Substance: CARFILZOMIB
     Dosage: 27 MG/M2, UNK
     Route: 042
     Dates: end: 20170912
  61. CARFILZOMIB [Suspect]
     Active Substance: CARFILZOMIB
     Dosage: 27 MG/M2
     Route: 042
     Dates: start: 20170925, end: 20170926
  62. CARFILZOMIB [Suspect]
     Active Substance: CARFILZOMIB
     Dosage: 27 MG/M2
     Route: 042
     Dates: start: 20171009, end: 20171010
  63. CARFILZOMIB [Suspect]
     Active Substance: CARFILZOMIB
     Dosage: 27 MG/M2
     Route: 042
     Dates: start: 20171023, end: 20171024
  64. CARFILZOMIB [Suspect]
     Active Substance: CARFILZOMIB
     Dosage: 27 MG/M2
     Route: 042
     Dates: start: 20171107, end: 20171108
  65. CARFILZOMIB [Suspect]
     Active Substance: CARFILZOMIB
     Dosage: 56 MG/M2
     Route: 042
     Dates: start: 20171120, end: 20171121
  66. CARFILZOMIB [Suspect]
     Active Substance: CARFILZOMIB
     Dosage: 56 MG/M2
     Route: 042
     Dates: start: 20171127, end: 20171128
  67. CARFILZOMIB [Suspect]
     Active Substance: CARFILZOMIB
     Dosage: 56 MG/M2
     Route: 042
     Dates: start: 20171204, end: 20171205
  68. CARFILZOMIB [Suspect]
     Active Substance: CARFILZOMIB
     Dosage: 56 MG/M2
     Route: 042
     Dates: start: 20171220, end: 20171221
  69. CARFILZOMIB [Suspect]
     Active Substance: CARFILZOMIB
     Dosage: 56 MG/M2
     Route: 042
     Dates: start: 20180103, end: 20180104
  70. CARFILZOMIB [Suspect]
     Active Substance: CARFILZOMIB
     Dosage: 56 MG/M2
     Route: 042
     Dates: start: 20180115, end: 20180116
  71. CARFILZOMIB [Suspect]
     Active Substance: CARFILZOMIB
     Dosage: 56 MG/M2
     Route: 042
     Dates: start: 20180122, end: 20180122
  72. CARFILZOMIB [Suspect]
     Active Substance: CARFILZOMIB
     Dosage: 56 MG/M2
     Route: 042
     Dates: start: 20180129, end: 20180130
  73. CARFILZOMIB [Suspect]
     Active Substance: CARFILZOMIB
     Dosage: 56 MG/M2
     Route: 042
     Dates: start: 20180212, end: 20180212
  74. CARFILZOMIB [Suspect]
     Active Substance: CARFILZOMIB
     Dosage: 56 MG/M2
     Route: 042
     Dates: start: 20180213, end: 20180213
  75. CARFILZOMIB [Suspect]
     Active Substance: CARFILZOMIB
     Dosage: 56 MG/M2
     Route: 042
     Dates: start: 20180219, end: 20180220
  76. CARFILZOMIB [Suspect]
     Active Substance: CARFILZOMIB
     Dosage: 56 MG/M2
     Route: 042
     Dates: start: 20180226
  77. KYPROLIS [Suspect]
     Active Substance: CARFILZOMIB
     Indication: Plasma cell myeloma
     Dosage: 20 MG/M2
     Route: 042
     Dates: start: 20170508, end: 20170508
  78. KYPROLIS [Suspect]
     Active Substance: CARFILZOMIB
     Dosage: 20 MG/M2
     Route: 042
     Dates: start: 20170509, end: 20170509
  79. KYPROLIS [Suspect]
     Active Substance: CARFILZOMIB
     Dosage: 20 MG/M2
     Route: 042
     Dates: start: 20170515, end: 20170515
  80. KYPROLIS [Suspect]
     Active Substance: CARFILZOMIB
     Dosage: 20 MG/M2
     Route: 042
     Dates: start: 20170516, end: 20170516
  81. KYPROLIS [Suspect]
     Active Substance: CARFILZOMIB
     Dosage: 27 MG/M2
     Route: 042
     Dates: start: 20170522, end: 20170522
  82. KYPROLIS [Suspect]
     Active Substance: CARFILZOMIB
     Dosage: 27 MG/M2
     Route: 042
     Dates: start: 20170523, end: 20170523
  83. KYPROLIS [Suspect]
     Active Substance: CARFILZOMIB
     Dosage: 27 MG/M2
     Route: 042
     Dates: start: 20170606, end: 20170606
  84. KYPROLIS [Suspect]
     Active Substance: CARFILZOMIB
     Dosage: 27 MG/M2
     Route: 042
     Dates: start: 20170607, end: 20170607
  85. KYPROLIS [Suspect]
     Active Substance: CARFILZOMIB
     Dosage: 27 MG/M2
     Route: 042
     Dates: start: 20170613, end: 20170613
  86. KYPROLIS [Suspect]
     Active Substance: CARFILZOMIB
     Dosage: 27 MG/M2
     Route: 042
     Dates: start: 20170703, end: 20170703
  87. KYPROLIS [Suspect]
     Active Substance: CARFILZOMIB
     Dosage: 27 MG/M2
     Route: 042
     Dates: start: 20170621, end: 20170621
  88. KYPROLIS [Suspect]
     Active Substance: CARFILZOMIB
     Dosage: 27 MG/M2
     Route: 042
     Dates: start: 20170801, end: 20170801
  89. KYPROLIS [Suspect]
     Active Substance: CARFILZOMIB
     Dosage: 27 MG/M2
     Route: 042
     Dates: start: 20170807, end: 20170808
  90. KYPROLIS [Suspect]
     Active Substance: CARFILZOMIB
     Dosage: 27 MG/M2
     Route: 042
     Dates: start: 20170814, end: 20170815
  91. KYPROLIS [Suspect]
     Active Substance: CARFILZOMIB
     Dosage: 27 MG/M2
     Route: 042
     Dates: start: 20170828, end: 20170829
  92. KYPROLIS [Suspect]
     Active Substance: CARFILZOMIB
     Dosage: 27 MG/M2
     Route: 042
     Dates: start: 20170904, end: 20170905
  93. KYPROLIS [Suspect]
     Active Substance: CARFILZOMIB
     Dosage: 27 MG/M2
     Route: 042
     Dates: start: 20170911, end: 20170912
  94. KYPROLIS [Suspect]
     Active Substance: CARFILZOMIB
     Dosage: 27 MG/M2
     Route: 042
     Dates: start: 20170925, end: 20170925
  95. KYPROLIS [Suspect]
     Active Substance: CARFILZOMIB
     Dosage: 27 MG/M2
     Route: 042
     Dates: start: 20171009, end: 20171010
  96. KYPROLIS [Suspect]
     Active Substance: CARFILZOMIB
     Dosage: 27 MG/M2
     Route: 042
     Dates: start: 20171023, end: 20171024
  97. KYPROLIS [Suspect]
     Active Substance: CARFILZOMIB
     Dosage: 27 MG/M2
     Route: 042
     Dates: start: 20171107, end: 20171108
  98. KYPROLIS [Suspect]
     Active Substance: CARFILZOMIB
     Dosage: 56 MG/M2
     Route: 042
     Dates: start: 20171120, end: 20171121
  99. KYPROLIS [Suspect]
     Active Substance: CARFILZOMIB
     Dosage: 56 MG/M2
     Route: 042
     Dates: start: 20171127, end: 20171127
  100. KYPROLIS [Suspect]
     Active Substance: CARFILZOMIB
     Dosage: 56 MG/M2
     Route: 042
     Dates: start: 20171204, end: 20171205
  101. KYPROLIS [Suspect]
     Active Substance: CARFILZOMIB
     Dosage: 56 MG/M2
     Route: 042
     Dates: start: 20171220, end: 20171221
  102. KYPROLIS [Suspect]
     Active Substance: CARFILZOMIB
     Dosage: 56 MG/M2
     Route: 042
     Dates: start: 20180103, end: 20180104
  103. KYPROLIS [Suspect]
     Active Substance: CARFILZOMIB
     Dosage: 56 MG/M2
     Route: 042
     Dates: start: 20180115, end: 20180115
  104. KYPROLIS [Suspect]
     Active Substance: CARFILZOMIB
     Dosage: 56 MG/M2
     Route: 042
     Dates: start: 20180122, end: 20180122
  105. KYPROLIS [Suspect]
     Active Substance: CARFILZOMIB
     Dosage: 56 MG/M2
     Route: 042
     Dates: start: 20180129, end: 20180130
  106. KYPROLIS [Suspect]
     Active Substance: CARFILZOMIB
     Dosage: 56 MG/M2
     Route: 042
     Dates: start: 20180212, end: 20180212
  107. KYPROLIS [Suspect]
     Active Substance: CARFILZOMIB
     Dosage: 56 MG/M2
     Route: 042
     Dates: start: 20180213, end: 20180213
  108. KYPROLIS [Suspect]
     Active Substance: CARFILZOMIB
     Dosage: 56 MG/M2
     Route: 042
     Dates: start: 20180219, end: 20180220
  109. KYPROLIS [Suspect]
     Active Substance: CARFILZOMIB
     Dosage: 56 MG/M2
     Route: 042
     Dates: start: 20180226
  110. FENTANYL [Concomitant]
     Active Substance: FENTANYL
     Indication: Arthralgia
     Dosage: 137 MG/H, QOD
     Route: 065
     Dates: start: 20170405
  111. CALCIUM CARBONATE [Concomitant]
     Active Substance: CALCIUM CARBONATE
     Indication: Osteolysis
     Dosage: 1254 MG
     Route: 065
  112. CALCIUM CARBONATE [Concomitant]
     Active Substance: CALCIUM CARBONATE
     Dosage: 1254 MG
     Route: 065
     Dates: start: 20170504
  113. XGEVA [Concomitant]
     Active Substance: DENOSUMAB
     Indication: Osteolysis
     Dosage: 120 MG, QMO
     Route: 065
     Dates: start: 20170125
  114. METAMIZOLE [Concomitant]
     Active Substance: METAMIZOLE
     Indication: Arthralgia
     Dosage: 160 OT, QID
     Route: 065
     Dates: start: 20150323
  115. POLYETHYLENE GLYCOLS [Concomitant]
     Active Substance: POLYETHYLENE GLYCOLS
     Indication: Constipation
     Dosage: UNK
     Route: 065
  116. POLYETHYLENE GLYCOLS [Concomitant]
     Active Substance: POLYETHYLENE GLYCOLS
     Dosage: UNK
     Route: 065
     Dates: start: 20170419
  117. FILGRASTIM [Concomitant]
     Active Substance: FILGRASTIM
     Indication: Product used for unknown indication
     Dosage: 0.5 ML, QD
     Route: 065
     Dates: start: 20170717, end: 20170722
  118. TORASEMID RATIOPHARM [Concomitant]
     Indication: Product used for unknown indication
     Dosage: 20 MG, QD
     Route: 065
     Dates: start: 20171127
  119. SODIUM PICOSULFATE [Concomitant]
     Active Substance: SODIUM PICOSULFATE
     Indication: Constipation
     Dosage: UNK
     Route: 065
  120. SODIUM PICOSULFATE [Concomitant]
     Active Substance: SODIUM PICOSULFATE
     Dosage: UNK
     Route: 065
     Dates: start: 20170628
  121. FENTANYL CITRATE [Concomitant]
     Active Substance: FENTANYL CITRATE
     Indication: Arthralgia
     Dosage: 600 MUG, UNK
     Route: 065
     Dates: start: 20171205, end: 20180102
  122. RAMIPRIL [Concomitant]
     Active Substance: RAMIPRIL
     Indication: Product used for unknown indication
     Dosage: 5 MG
     Route: 065
     Dates: start: 20180903
  123. BISOPROLOL [Concomitant]
     Active Substance: BISOPROLOL
     Indication: Product used for unknown indication
     Dosage: UNK
     Route: 065
     Dates: start: 20180903

REACTIONS (2)
  - Thrombocytopenia [Recovered/Resolved]
  - Lymphopenia [Recovered/Resolved]
